FAERS Safety Report 6402365-8 (Version None)
Quarter: 2009Q4

REPORT INFORMATION
  Report Type: 
  Country: None (occurrence: None)
  Receive Date: 20091015
  Receipt Date: 20091006
  Transmission Date: 20100525
  Serious: Yes (Other)
  Sender: FDA-Public Use
  Company Number: US-ROCHE-448387

PATIENT
  Age: 36 Year
  Sex: Male

DRUGS (2)
  1. LARIAM [Suspect]
     Indication: MALARIA PROPHYLAXIS
     Route: 065
     Dates: start: 20010325, end: 20030125
  2. CYMBALTA [Concomitant]

REACTIONS (2)
  - POST CONCUSSION SYNDROME [None]
  - SUICIDAL IDEATION [None]
